FAERS Safety Report 12045785 (Version 1)
Quarter: 2016Q1

REPORT INFORMATION
  Report Type: Spontaneous
  Country: US (occurrence: US)
  Receive Date: 20160208
  Receipt Date: 20160208
  Transmission Date: 20160526
  Serious: Yes (Other)
  Sender: FDA-Public Use
  Company Number: US-BAYER-2016-019077

PATIENT
  Age: 79 Year
  Sex: Female
  Weight: 65.76 kg

DRUGS (7)
  1. BAYER LOW DOSE [Suspect]
     Active Substance: ASPIRIN
     Dosage: 80 MG, QD
     Dates: end: 20160114
  2. LIPITOR [Suspect]
     Active Substance: ATORVASTATIN CALCIUM
     Indication: CEREBROVASCULAR ACCIDENT
     Dosage: 80 MG, QD
     Route: 048
     Dates: start: 20151117
  3. PLAVIX [Suspect]
     Active Substance: CLOPIDOGREL BISULFATE
     Indication: CEREBROVASCULAR ACCIDENT
     Dosage: 75 MG, QD
     Route: 048
     Dates: start: 20151117
  4. CITRACAL [Concomitant]
     Active Substance: CALCIUM CITRATE
     Route: 048
  5. VITAMIN D [Concomitant]
     Active Substance: CHOLECALCIFEROL
  6. TRIAMTERENE. [Suspect]
     Active Substance: TRIAMTERENE
     Dosage: 0.5 DF, QD
     Route: 048
  7. CENTRUM SILVER [Concomitant]
     Active Substance: MINERALS\VITAMINS
     Dosage: QD

REACTIONS (2)
  - Alopecia [Not Recovered/Not Resolved]
  - Cerebrovascular accident [None]

NARRATIVE: CASE EVENT DATE: 2015
